FAERS Safety Report 14150115 (Version 1)
Quarter: 2017Q4

REPORT INFORMATION
  Report Type: Spontaneous
  Country: BE (occurrence: BE)
  Receive Date: 20171101
  Receipt Date: 20171101
  Transmission Date: 20180321
  Serious: Yes (Other)
  Sender: FDA-Public Use
  Company Number: BE-IMPAX LABORATORIES, INC-2017-IPXL-02993

PATIENT
  Age: 34 Year
  Sex: Female

DRUGS (2)
  1. URSODIOL. [Suspect]
     Active Substance: URSODIOL
     Indication: PRODUCT USE IN UNAPPROVED INDICATION
  2. URSODIOL. [Suspect]
     Active Substance: URSODIOL
     Indication: CHOLESTASIS OF PREGNANCY
     Dosage: UNK
     Route: 065

REACTIONS (4)
  - Drug ineffective for unapproved indication [Unknown]
  - Premature delivery [Unknown]
  - Hepatocellular carcinoma [Unknown]
  - Maternal exposure during pregnancy [Unknown]
